FAERS Safety Report 7118947-4 (Version None)
Quarter: 2010Q4

REPORT INFORMATION
  Report Type: 
  Country: None (occurrence: None)
  Receive Date: 20101123
  Receipt Date: 20101111
  Transmission Date: 20110411
  Serious: Yes (Hospitalization)
  Sender: FDA-Public Use
  Company Number: DE-ROCHE-741127

PATIENT
  Sex: Female
  Weight: 74 kg

DRUGS (7)
  1. MYCOPHENOLATE MOFETIL [Suspect]
     Indication: RENAL TRANSPLANT
     Dosage: LAST DOSE PRIOR TO SAE ON 18 OCTOBER 2010.
     Route: 048
     Dates: start: 20100803
  2. MYCOPHENOLATE MOFETIL [Suspect]
     Dosage: DOSE REDUCED.
     Route: 048
     Dates: start: 20101030, end: 20101105
  3. BASILIXIMAB [Suspect]
     Indication: RENAL TRANSPLANT
     Dosage: FORM: LIQUID.
     Route: 042
     Dates: start: 20100803
  4. TACROLIMUS [Suspect]
     Indication: RENAL TRANSPLANT
     Dosage: LAST DOSE PRIOR TO SAE ON 18 OCTOBER 2010.
     Route: 048
     Dates: start: 20100803
  5. TACROLIMUS [Suspect]
     Dosage: DOSE REDUCED.
     Route: 048
     Dates: start: 20101029, end: 20101105
  6. PREDNISOLONE [Suspect]
     Indication: RENAL TRANSPLANT
     Dosage: LAST DOSE PRIOR TO SAE ON 18 OCTOBER 2010.
     Route: 048
     Dates: start: 20100803
  7. MARCUMAR [Concomitant]
     Dates: start: 20100818, end: 20101025

REACTIONS (5)
  - ARTERIAL DISORDER [None]
  - DIALYSIS [None]
  - KIDNEY TRANSPLANT REJECTION [None]
  - LEUKOPENIA [None]
  - RENAL FAILURE ACUTE [None]
